FAERS Safety Report 24977574 (Version 1)
Quarter: 2025Q1

REPORT INFORMATION
  Report Type: Spontaneous
  Country: GB (occurrence: GB)
  Receive Date: 20250217
  Receipt Date: 20250217
  Transmission Date: 20250409
  Serious: Yes (Hospitalization, Other)
  Sender: ABBVIE
  Company Number: GB-ABBVIE-6136848

PATIENT
  Age: 75 Year
  Sex: Female

DRUGS (3)
  1. VALPROATE SODIUM [Suspect]
     Active Substance: VALPROATE SODIUM
     Indication: Temporal lobe epilepsy
     Route: 048
  2. VALPROATE SODIUM [Suspect]
     Active Substance: VALPROATE SODIUM
     Indication: Temporal lobe epilepsy
     Route: 048
  3. CLOBAZAM [Suspect]
     Active Substance: CLOBAZAM
     Indication: Temporal lobe epilepsy
     Route: 065

REACTIONS (15)
  - Eye pain [Unknown]
  - Oral pain [Unknown]
  - Fall [Unknown]
  - Lip swelling [Unknown]
  - Abdominal pain upper [Unknown]
  - Seizure [Unknown]
  - Epilepsy [Unknown]
  - Eye contusion [Unknown]
  - Abnormal sleep-related event [Unknown]
  - Somnambulism [Unknown]
  - Amnesia [Unknown]
  - Alopecia [Unknown]
  - Gingival pain [Unknown]
  - Gingival bleeding [Unknown]
  - Limb asymmetry [Unknown]
